FAERS Safety Report 4360198-0 (Version None)
Quarter: 2004Q2

REPORT INFORMATION
  Report Type: 
  Country: None (occurrence: None)
  Receive Date: 20040518
  Receipt Date: 20040518
  Transmission Date: 20050107
  Serious: Yes (Other)
  Sender: FDA-Public Use
  Company Number: None

PATIENT
  Age: 56 Year
  Sex: Female
  Weight: 63.5036 kg

DRUGS (6)
  1. WELLBUTRIN SR [Suspect]
     Indication: ANXIETY
     Dosage: 150 MG BID ORAL
     Route: 048
     Dates: start: 20040314, end: 20040328
  2. WELLBUTRIN SR [Suspect]
     Indication: DEPRESSION
     Dosage: 150 MG BID ORAL
     Route: 048
     Dates: start: 20040314, end: 20040328
  3. WELLBUTRIN SR [Suspect]
     Indication: EX-SMOKER
     Dosage: 150 MG BID ORAL
     Route: 048
     Dates: start: 20040314, end: 20040328
  4. WELLBUTRIN XL [Suspect]
     Indication: ANXIETY
     Dosage: 300 MG QD ORAL
     Route: 048
     Dates: start: 20040329, end: 20040404
  5. WELLBUTRIN XL [Suspect]
     Indication: DEPRESSION
     Dosage: 300 MG QD ORAL
     Route: 048
     Dates: start: 20040329, end: 20040404
  6. WELLBUTRIN XL [Suspect]
     Indication: EX-SMOKER
     Dosage: 300 MG QD ORAL
     Route: 048
     Dates: start: 20040329, end: 20040404

REACTIONS (3)
  - DRUG INTOLERANCE [None]
  - OBSTRUCTIVE AIRWAYS DISORDER [None]
  - SWOLLEN TONGUE [None]
